FAERS Safety Report 10583630 (Version 1)
Quarter: 2014Q4

REPORT INFORMATION
  Report Type: Spontaneous
  Country: DE (occurrence: None)
  Receive Date: 20141112
  Receipt Date: 20141112
  Transmission Date: 20150529
  Serious: Yes (Hospitalization)
  Sender: FDA-Public Use
  Company Number: DE2014GSK018251

PATIENT
  Sex: Male

DRUGS (4)
  1. DOLUTEGRAVIR [Suspect]
     Active Substance: DOLUTEGRAVIR
     Indication: HIV INFECTION
     Dates: start: 20140220
  2. PROMETHAZIN (PROMETHAZINE HYDROCHLORIDE) [Concomitant]
  3. DIPIPERON (PIPAMPERONE) [Concomitant]
  4. TRUVADA (EMTRICITABINE, TENOFOVIR DISOPROXIL FUMARATE, EMTRICITABINE, [Concomitant]

REACTIONS (1)
  - Alcohol abuse [None]

NARRATIVE: CASE EVENT DATE: 20140627
